FAERS Safety Report 21968852 (Version 2)
Quarter: 2023Q2

REPORT INFORMATION
  Report Type: Report from Study
  Country: TW (occurrence: TW)
  Receive Date: 20230208
  Receipt Date: 20230404
  Transmission Date: 20230721
  Serious: Yes (Other)
  Sender: FDA-Public Use
  Company Number: TW-BAYER-2023A011356

PATIENT
  Age: 64 Year
  Sex: Male

DRUGS (1)
  1. EYLEA [Suspect]
     Active Substance: AFLIBERCEPT
     Indication: Product used for unknown indication
     Dosage: SOLUTION FOR INJECTION

REACTIONS (3)
  - Subretinal fluid [Unknown]
  - Drug ineffective [Unknown]
  - Detachment of retinal pigment epithelium [Unknown]
